FAERS Safety Report 9918853 (Version 2)
Quarter: 2015Q4

REPORT INFORMATION
  Report Type: Report from Study
  Country: US (occurrence: US)
  Receive Date: 20140224
  Receipt Date: 20151001
  Transmission Date: 20160305
  Serious: Yes (Hospitalization, Other)
  Sender: FDA-Public Use
  Company Number: US-ROCHE-1333627

PATIENT
  Age: 81 Year
  Sex: Female
  Weight: 67.19 kg

DRUGS (22)
  1. TRAMADOL HYDROCHLORIDE. [Concomitant]
     Active Substance: TRAMADOL HYDROCHLORIDE
  2. VITAMIN B6 [Concomitant]
     Active Substance: PYRIDOXINE HYDROCHLORIDE
  3. GENTEAL (UNITED STATES) [Concomitant]
     Dosage: ONE DROP IN BOTH EYES PM
     Route: 047
  4. TROPICAMIDE. [Concomitant]
     Active Substance: TROPICAMIDE
     Route: 065
  5. PROPARACAINE [Concomitant]
     Active Substance: PROPARACAINE
  6. ATENOLOL/CHLORTHALIDONE [Concomitant]
     Active Substance: ATENOLOL\CHLORTHALIDONE
     Dosage: 50-25 MG, 1 TABLET
     Route: 065
  7. LIDOCAINE. [Concomitant]
     Active Substance: LIDOCAINE
  8. AVASTIN [Suspect]
     Active Substance: BEVACIZUMAB
     Dosage: OS
     Route: 065
     Dates: start: 20070702
  9. OCUFLOX (UNITED STATES) [Concomitant]
     Dosage: OS FOR 4 DAYS
     Route: 065
  10. PHENYLEPHRINE [Concomitant]
     Active Substance: PHENYLEPHRINE\PHENYLEPHRINE HYDROCHLORIDE
     Route: 065
  11. VITAMIN E [Concomitant]
     Active Substance: .ALPHA.-TOCOPHEROL
  12. LUCENTIS [Suspect]
     Active Substance: RANIBIZUMAB
     Indication: NEOVASCULAR AGE-RELATED MACULAR DEGENERATION
     Route: 050
     Dates: start: 20100125
  13. VITAMIN B12 [Concomitant]
     Active Substance: CYANOCOBALAMIN
  14. FISH OIL [Concomitant]
     Active Substance: FISH OIL
  15. KENALOG [Concomitant]
     Active Substance: TRIAMCINOLONE ACETONIDE
  16. LISINOPRIL. [Concomitant]
     Active Substance: LISINOPRIL
  17. EYLEA [Concomitant]
     Active Substance: AFLIBERCEPT
     Route: 065
  18. FOLIC ACID. [Concomitant]
     Active Substance: FOLIC ACID
  19. XANAX [Concomitant]
     Active Substance: ALPRAZOLAM
  20. VITAMIN C [Concomitant]
     Active Substance: ASCORBIC ACID
  21. AVASTIN [Suspect]
     Active Substance: BEVACIZUMAB
     Indication: PRODUCT USED FOR UNKNOWN INDICATION
     Dosage: OD
     Route: 065
     Dates: start: 20091005, end: 20091109
  22. DYAZIDE [Concomitant]
     Active Substance: HYDROCHLOROTHIAZIDE\TRIAMTERENE

REACTIONS (12)
  - Pollakiuria [Unknown]
  - Hypertension [Unknown]
  - Visual acuity reduced [Unknown]
  - Food poisoning [Unknown]
  - Macular oedema [Unknown]
  - Swelling [Unknown]
  - Back pain [Unknown]
  - Retinal haemorrhage [Unknown]
  - Micturition urgency [Unknown]
  - Arthralgia [Unknown]
  - Musculoskeletal stiffness [Unknown]
  - Memory impairment [Unknown]

NARRATIVE: CASE EVENT DATE: 200911
